FAERS Safety Report 4759998-4 (Version None)
Quarter: 2005Q3

REPORT INFORMATION
  Report Type: 
  Country: None (occurrence: None)
  Receive Date: 20050902
  Receipt Date: 20050823
  Transmission Date: 20060218
  Serious: Yes (Other)
  Sender: FDA-Public Use
  Company Number: PHEH2005US09416

PATIENT
  Sex: Female

DRUGS (1)
  1. FORADIL [Suspect]

REACTIONS (4)
  - ACCIDENTAL EXPOSURE [None]
  - CONDITION AGGRAVATED [None]
  - DEVICE FAILURE [None]
  - LUNG NEOPLASM [None]
